FAERS Safety Report 7242028-2 (Version None)
Quarter: 2011Q1

REPORT INFORMATION
  Report Type: 
  Country: None (occurrence: None)
  Receive Date: 20110114
  Receipt Date: 20110101
  Transmission Date: 20110831
  Serious: Yes (Death)
  Sender: FDA-Public Use
  Company Number: 011300

PATIENT
  Age: 80 Year
  Sex: Female
  Weight: 97 kg

DRUGS (11)
  1. PLETAL [Suspect]
     Indication: PERIPHERAL ARTERIAL OCCLUSIVE DISEASE
     Dosage: 100 MG, DAILY DOSE, ORAL
     Route: 048
     Dates: start: 20100924, end: 20100930
  2. AMLODIPINE [Concomitant]
  3. TORSEMIDE [Concomitant]
  4. OPIPRAMOL (OPIPRAMOL) [Concomitant]
  5. ACETYLSALICYLIC ACID SRT [Concomitant]
  6. LEVOTHYROXINE SODIUM [Concomitant]
  7. AMITRIPTYLINE HYDROCHLORIDE [Concomitant]
  8. CANDESARTAN CILEXETIL [Concomitant]
  9. TRAMADOL HCL [Concomitant]
  10. OMEPRAZOLE [Concomitant]
  11. MAGNESIUM (MAGNESIUM) [Concomitant]

REACTIONS (2)
  - DIALYSIS [None]
  - RENAL FAILURE [None]
